FAERS Safety Report 18686147 (Version 1)
Quarter: 2020Q4

REPORT INFORMATION
  Report Type: Spontaneous
  Country: US (occurrence: US)
  Receive Date: 20201230
  Receipt Date: 20201230
  Transmission Date: 20210114
  Serious: Yes (Hospitalization)
  Sender: FDA-Public Use
  Company Number: US-ELI_LILLY_AND_COMPANY-US202012011229

PATIENT
  Age: 58 Year
  Sex: Male

DRUGS (2)
  1. LOSARTAN. [Concomitant]
     Active Substance: LOSARTAN
     Indication: HYPERTENSION
     Dosage: 50 MG, UNKNOWN
  2. IXEKIZUMAB [Suspect]
     Active Substance: IXEKIZUMAB
     Indication: PSORIASIS
     Dosage: 80 MG, ONCE EVERY 4 WEEKS
     Route: 058

REACTIONS (9)
  - Pulmonary mass [Unknown]
  - Diastolic dysfunction [Unknown]
  - Coxsackie virus test positive [Unknown]
  - Lymphadenopathy mediastinal [Unknown]
  - Cardiac valve sclerosis [Unknown]
  - Tricuspid valve incompetence [Unknown]
  - Hilar lymphadenopathy [Unknown]
  - Cardiac sarcoidosis [Recovered/Resolved]
  - Mitral valve incompetence [Unknown]
